FAERS Safety Report 5374858-6 (Version None)
Quarter: 2007Q2

REPORT INFORMATION
  Report Type: 
  Country: None (occurrence: None)
  Receive Date: 20070629
  Receipt Date: 20070619
  Transmission Date: 20071010
  Serious: Yes (Other)
  Sender: FDA-Public Use
  Company Number: B0476962A

PATIENT
  Age: 36 Year
  Sex: Female

DRUGS (2)
  1. COMBIVIR [Suspect]
     Indication: DRUG USE FOR UNKNOWN INDICATION
     Dosage: 1TAB TWICE PER DAY
     Route: 048
     Dates: start: 19900101, end: 20070401
  2. NEVIRAPINE [Suspect]
     Indication: DRUG USE FOR UNKNOWN INDICATION
     Dosage: 200MG TWICE PER DAY
     Route: 048
     Dates: start: 19900101, end: 20070401

REACTIONS (3)
  - ALANINE AMINOTRANSFERASE INCREASED [None]
  - DRUG EXPOSURE DURING PREGNANCY [None]
  - HEPATITIS [None]
